FAERS Safety Report 6526225-7 (Version None)
Quarter: 2009Q4

REPORT INFORMATION
  Report Type: 
  Country: None (occurrence: None)
  Receive Date: 20091228
  Receipt Date: 20091221
  Transmission Date: 20100525
  Serious: Yes (Death)
  Sender: FDA-Public Use
  Company Number: IDA-00302

PATIENT

DRUGS (1)
  1. PROPRANOLOL [Suspect]
     Dosage: 10 MG, PRN, TRANSPLACENTAL
     Route: 064

REACTIONS (3)
  - INTRA-UTERINE DEATH [None]
  - MATERNAL DRUGS AFFECTING FOETUS [None]
  - UMBILICAL CORD AROUND NECK [None]
